FAERS Safety Report 9797148 (Version 1)
Quarter: 2014Q1

REPORT INFORMATION
  Report Type: Spontaneous
  Country: US (occurrence: US)
  Receive Date: 20140106
  Receipt Date: 20140106
  Transmission Date: 20141002
  Serious: Yes (Other)
  Sender: FDA-Public Use
  Company Number: US-AMGEN-USASP2014000023

PATIENT
  Age: 60 Year
  Sex: Female

DRUGS (9)
  1. ENBREL [Suspect]
     Indication: PRODUCT USED FOR UNKNOWN INDICATION
     Dosage: 50 MG, QWK
     Route: 058
  2. PLAQUENIL                          /00072602/ [Concomitant]
     Dosage: 200 MG, UNK
  3. SYNTHROID [Concomitant]
     Dosage: 25 MUG, UNK
  4. ETODOLAC [Concomitant]
     Dosage: 400 MG, UNK
  5. VITAMIN B-12 [Concomitant]
     Dosage: 1000 MUG, UNK
  6. FEMHRT [Concomitant]
     Dosage: UNK, 0.5-2.5
  7. CALCIUM CITRATE [Concomitant]
     Dosage: 200 MG, UNK
  8. VITAMIN D                          /00107901/ [Concomitant]
     Dosage: 1000 UNIT, UNK
  9. KRILL OIL [Concomitant]
     Dosage: 300 MG, UNK

REACTIONS (1)
  - Lymphoma [Unknown]
